FAERS Safety Report 25538263 (Version 2)
Quarter: 2025Q3

REPORT INFORMATION
  Report Type: Spontaneous
  Country: US (occurrence: US)
  Receive Date: 20250710
  Receipt Date: 20250820
  Transmission Date: 20251020
  Serious: Yes (Other)
  Sender: PFIZER
  Company Number: US-PFIZER INC-202500139356

PATIENT
  Age: 47 Year
  Sex: Female

DRUGS (8)
  1. IBRANCE [Suspect]
     Active Substance: PALBOCICLIB
     Route: 048
     Dates: start: 20250607
  2. LORATADINE [Concomitant]
     Active Substance: LORATADINE
  3. ITOVEBI [Concomitant]
     Active Substance: INAVOLISIB
  4. HYDROCHLOROTHIAZIDE [Concomitant]
     Active Substance: HYDROCHLOROTHIAZIDE
  5. FASLODEX [Concomitant]
     Active Substance: FULVESTRANT
  6. COLLAGEN [Concomitant]
     Active Substance: COLLAGEN
  7. BIOTIN [Concomitant]
     Active Substance: BIOTIN
  8. BIOTIN [Concomitant]
     Active Substance: BIOTIN

REACTIONS (4)
  - Neutropenia [Unknown]
  - Leukopenia [Unknown]
  - Diarrhoea [Unknown]
  - Stomatitis [Unknown]

NARRATIVE: CASE EVENT DATE: 20250101
